FAERS Safety Report 8385557-0 (Version None)
Quarter: 2012Q2

REPORT INFORMATION
  Report Type: 
  Country: None (occurrence: None)
  Receive Date: 20120525
  Receipt Date: 20120516
  Transmission Date: 20120825
  Serious: No
  Sender: FDA-Public Use
  Company Number: US-BIOGENIDEC-2012BI017429

PATIENT
  Age: 23 Year
  Sex: Female

DRUGS (1)
  1. AVONEX [Suspect]
     Indication: MULTIPLE SCLEROSIS
     Route: 030
     Dates: start: 20100604, end: 20110228

REACTIONS (6)
  - FATIGUE [None]
  - ANXIETY [None]
  - DYSSTASIA [None]
  - DEPRESSION [None]
  - HYPOAESTHESIA [None]
  - BACK PAIN [None]
